FAERS Safety Report 4363560-5 (Version None)
Quarter: 2004Q2

REPORT INFORMATION
  Report Type: 
  Country: None (occurrence: None)
  Receive Date: 20040518
  Receipt Date: 20040507
  Transmission Date: 20050107
  Serious: Yes (Hospitalization)
  Sender: FDA-Public Use
  Company Number: 2004202422CA

PATIENT
  Age: 55 Year
  Sex: Female
  Weight: 67.5 kg

DRUGS (14)
  1. PHARMORUBICIN RD (EPIRUBICIN HYDROCHLORIDE) POWDER, STERILE [Suspect]
     Indication: BREAST CANCER
     Dosage: 98 MG, DAY 1/CYCLE 6, IV
     Route: 042
     Dates: start: 20031028, end: 20031028
  2. ADRUCIL [Suspect]
     Indication: BREAST CANCER
     Dosage: 812 MG, DAY 1/CYCLE 6, IV
     Route: 042
     Dates: start: 20031028, end: 20031028
  3. CYCLOPHOSPHAMIDE [Suspect]
     Dosage: 125 MG, DAILY/CYCLE 6, ORAL
     Route: 048
     Dates: start: 20030930, end: 20031127
  4. COMPARATOR-CIPROFLOXACIN-TABLET [Suspect]
     Dosage: 500 MG, BID
     Dates: start: 20030930, end: 20031127
  5. COMPARATOR-EPOETIN ALFA (EPOETIN ALFA, EPOETIN ALFA) INJECTION [Suspect]
     Dosage: 40000 IU, WEEKLY, SUBCUTANEOUS
     Route: 058
     Dates: start: 20030930, end: 20031127
  6. DECADRON [Concomitant]
  7. ZOFRAN [Concomitant]
  8. LOSEC [Concomitant]
  9. CLARITIN [Concomitant]
  10. VALTREX [Concomitant]
  11. FLUCONAZOLE [Concomitant]
  12. PERCOCET (OXYCODONE HYDROCHLORIDE, OXYCODONE TEREPHTHALATE) [Concomitant]
  13. MOTILIUM [Concomitant]
  14. INNOHEP [Concomitant]

REACTIONS (6)
  - COUGH [None]
  - HEPATIC FAILURE [None]
  - HEPATOTOXICITY [None]
  - INTERNATIONAL NORMALISED RATIO INCREASED [None]
  - LETHARGY [None]
  - PLATELET COUNT DECREASED [None]
